FAERS Safety Report 10949986 (Version 1)
Quarter: 2015Q1

REPORT INFORMATION
  Report Type: Spontaneous
  Country: US (occurrence: None)
  Receive Date: 20150323
  Receipt Date: 20150323
  Transmission Date: 20150721
  Serious: Yes (Disabling)
  Sender: FDA-Public Use
  Company Number: None

PATIENT
  Age: 32 Year
  Sex: Female
  Weight: 61.24 kg

DRUGS (15)
  1. OMEGA-3 ACIDS [Concomitant]
     Active Substance: OMEGA-3 FATTY ACIDS
  2. GREAT LAKES COLLAGEN [Concomitant]
  3. S-ACETYL GLUTATHIONE [Concomitant]
  4. MITOQ [Concomitant]
  5. SELENIUM [Concomitant]
     Active Substance: SELENIUM
  6. VITAMIN C [Concomitant]
     Active Substance: ASCORBIC ACID
  7. METHYLFOLATE B-12 [Concomitant]
  8. CIPROFLOXACIN. [Suspect]
     Active Substance: CIPROFLOXACIN
     Indication: BACTERIURIA
     Dosage: 1 PILL, TWICE DAILY, TAKEN BY MOUTH
     Dates: start: 20141205, end: 20141205
  9. ZINC [Concomitant]
     Active Substance: ZINC\ZINC CHLORIDE
  10. MAGNESIUM CHELATE [Concomitant]
  11. D-MANNOSE [Concomitant]
  12. VITAMIN E [Concomitant]
     Active Substance: .ALPHA.-TOCOPHEROL
  13. MAGNESIUM GEL??? [Concomitant]
  14. THERACURMIN [Concomitant]
  15. VITAMIN D3 [Concomitant]
     Active Substance: CHOLECALCIFEROL

REACTIONS (7)
  - Abasia [None]
  - Toxicity to various agents [None]
  - Hypoaesthesia oral [None]
  - Paraesthesia [None]
  - Tendon pain [None]
  - Swollen tongue [None]
  - Muscular weakness [None]

NARRATIVE: CASE EVENT DATE: 20141205
